FAERS Safety Report 22146096 (Version 10)
Quarter: 2025Q1

REPORT INFORMATION
  Report Type: Spontaneous
  Country: US (occurrence: US)
  Receive Date: 20230328
  Receipt Date: 20250227
  Transmission Date: 20250409
  Serious: No
  Sender: PFIZER
  Company Number: US-PFIZER INC-202300127698

PATIENT
  Age: 12 Year
  Sex: Male

DRUGS (8)
  1. GENOTROPIN [Suspect]
     Active Substance: SOMATROPIN
     Indication: Noonan syndrome
     Dosage: 0.9 MG, EVERY EVENING
     Dates: start: 202303
  2. GENOTROPIN [Suspect]
     Active Substance: SOMATROPIN
     Dosage: 1.0 MG, DAILY
  3. PENICILLIN G [Concomitant]
     Active Substance: PENICILLIN G
     Indication: Heart valve incompetence
     Dosage: 250 MG, 2X/DAY
  4. PENICILLIN G [Concomitant]
     Active Substance: PENICILLIN G
     Indication: Anti-infective therapy
  5. NAPROXEN [Concomitant]
     Active Substance: NAPROXEN
     Indication: Pain
     Dosage: 2X/DAY (HALF OF 220MG)
  6. MONTELUKAST [Concomitant]
     Active Substance: MONTELUKAST
     Indication: Hypersensitivity
  7. CETIRIZINE [Concomitant]
     Active Substance: CETIRIZINE HYDROCHLORIDE
     Indication: Hypersensitivity
  8. FLONASE [Concomitant]
     Active Substance: FLUTICASONE PROPIONATE
     Indication: Hypersensitivity
     Dosage: UNK, 2X/DAY

REACTIONS (9)
  - Injection site pain [Unknown]
  - Product communication issue [Unknown]
  - Device difficult to use [Unknown]
  - Device leakage [Unknown]
  - Device breakage [Unknown]
  - Device malfunction [Unknown]
  - Device mechanical issue [Unknown]
  - Incorrect dose administered by device [Unknown]
  - Drug dose omission by device [Unknown]

NARRATIVE: CASE EVENT DATE: 20230301
